FAERS Safety Report 7075893-2 (Version None)
Quarter: 2010Q4

REPORT INFORMATION
  Report Type: 
  Country: None (occurrence: None)
  Receive Date: 20101101
  Receipt Date: 20101020
  Transmission Date: 20110411
  Serious: No
  Sender: FDA-Public Use
  Company Number: US-BIOGENIDEC-2010BI037153

PATIENT
  Sex: Female

DRUGS (1)
  1. TYSABRI [Suspect]
     Indication: MULTIPLE SCLEROSIS
     Route: 042
     Dates: start: 20080717

REACTIONS (7)
  - ABASIA [None]
  - BLADDER DYSFUNCTION [None]
  - BLOOD POTASSIUM DECREASED [None]
  - DYSPHONIA [None]
  - FALL [None]
  - SPINAL FRACTURE [None]
  - URINARY TRACT INFECTION [None]
